FAERS Safety Report 10666781 (Version 1)
Quarter: 2014Q4

REPORT INFORMATION
  Report Type: Spontaneous
  Country: US (occurrence: None)
  Receive Date: 20141219
  Receipt Date: 20141219
  Transmission Date: 20150529
  Serious: Yes (Death)
  Sender: FDA-Public Use
  Company Number: None

PATIENT
  Age: 70 Year
  Sex: Female

DRUGS (1)
  1. REVLIMID [Suspect]
     Active Substance: LENALIDOMIDE
     Indication: MYELODYSPLASTIC SYNDROME
     Route: 048
     Dates: start: 20140920, end: 20141008

REACTIONS (10)
  - Hypotension [None]
  - Klebsiella test positive [None]
  - Tachycardia [None]
  - Culture urine positive [None]
  - Blood culture positive [None]
  - Clostridium test positive [None]
  - Stevens-Johnson syndrome [None]
  - Staphylococcus test positive [None]
  - Respiratory distress [None]
  - No therapeutic response [None]

NARRATIVE: CASE EVENT DATE: 20141013
